FAERS Safety Report 6127659-5 (Version None)
Quarter: 2009Q1

REPORT INFORMATION
  Report Type: 
  Country: None (occurrence: None)
  Receive Date: 20090323
  Receipt Date: 20090310
  Transmission Date: 20090719
  Serious: Yes (Other)
  Sender: FDA-Public Use
  Company Number: US-PFIZER INC-2006042867

PATIENT
  Sex: Female
  Weight: 150 kg

DRUGS (11)
  1. PROVERA [Suspect]
     Indication: HORMONE REPLACEMENT THERAPY
     Dosage: 5 MG, UNK
     Route: 048
     Dates: start: 19920101, end: 19960101
  2. PROVERA [Suspect]
     Indication: MENOPAUSAL SYMPTOMS
  3. MEDROXYPROGESTERONE AND MEDROXYPROGESTERONE ACETATE [Suspect]
     Indication: HORMONE REPLACEMENT THERAPY
     Dosage: 5 MG, UNK
     Route: 048
     Dates: start: 19970101, end: 19990101
  4. MEDROXYPROGESTERONE AND MEDROXYPROGESTERONE ACETATE [Suspect]
     Indication: MENOPAUSAL SYMPTOMS
  5. PREMARIN [Suspect]
     Indication: HORMONE REPLACEMENT THERAPY
     Dosage: 0.625 MG, UNK
     Route: 065
     Dates: start: 19920101, end: 19940101
  6. PREMARIN [Suspect]
     Indication: MENOPAUSAL SYMPTOMS
     Dosage: UNK
     Route: 065
     Dates: start: 19950101
  7. ESTRATEST [Suspect]
     Indication: HORMONE REPLACEMENT THERAPY
     Dosage: UNK
     Route: 065
     Dates: start: 19940101
  8. ESTRATEST [Suspect]
     Indication: MENOPAUSAL SYMPTOMS
     Dosage: UNK
     Dates: start: 19960101
  9. ESTRATEST [Suspect]
     Dosage: UNK
     Dates: start: 19970101, end: 19990101
  10. ESTRATAB [Suspect]
     Indication: HORMONE REPLACEMENT THERAPY
     Dosage: 625 MG, UNK
     Route: 065
     Dates: start: 19950101
  11. ESTRATAB [Suspect]
     Indication: MENOPAUSAL SYMPTOMS

REACTIONS (1)
  - BREAST CANCER [None]
